FAERS Safety Report 9145083 (Version 2)
Quarter: 2013Q2

REPORT INFORMATION
  Report Type: Spontaneous
  Country: US (occurrence: US)
  Receive Date: 20130307
  Receipt Date: 20130412
  Transmission Date: 20140414
  Serious: No
  Sender: FDA-Public Use
  Company Number: US-BIOGENIDEC-2013BI019753

PATIENT
  Sex: Male

DRUGS (1)
  1. TYSABRI [Suspect]
     Indication: MULTIPLE SCLEROSIS
     Route: 042
     Dates: start: 20110208

REACTIONS (10)
  - Sensitivity of teeth [Recovered/Resolved]
  - Muscle spasms [Recovered/Resolved]
  - Local swelling [Not Recovered/Not Resolved]
  - Arthropathy [Recovered/Resolved]
  - Musculoskeletal pain [Recovered/Resolved]
  - Sleep disorder [Recovered/Resolved]
  - Abdominal pain upper [Recovered/Resolved]
  - Malocclusion [Recovered/Resolved]
  - Pain of skin [Not Recovered/Not Resolved]
  - Alopecia [Recovered/Resolved]
